FAERS Safety Report 7417692-5 (Version None)
Quarter: 2011Q2

REPORT INFORMATION
  Report Type: 
  Country: None (occurrence: None)
  Receive Date: 20110415
  Receipt Date: 20110413
  Transmission Date: 20111010
  Serious: Yes (Other)
  Sender: FDA-Public Use
  Company Number: CA-PFIZER INC-2011081405

PATIENT
  Age: 64 Year
  Sex: Female

DRUGS (4)
  1. LIPITOR [Suspect]
     Dosage: 40 MG
     Dates: end: 20100101
  2. LIPIDIL [Concomitant]
     Dosage: UNK
  3. LIPITOR [Suspect]
     Dosage: 20 MG
     Dates: start: 20100101
  4. SYNTHROID [Concomitant]
     Dosage: UNK

REACTIONS (2)
  - MACULAR DEGENERATION [None]
  - LIVER DISORDER [None]
